FAERS Safety Report 6201339-X (Version None)
Quarter: 2009Q2

REPORT INFORMATION
  Report Type: 
  Country: None (occurrence: None)
  Receive Date: 20090526
  Receipt Date: 20090518
  Transmission Date: 20091009
  Serious: Yes (Other)
  Sender: FDA-Public Use
  Company Number: PHHY2009TN19220

PATIENT
  Age: 18 Year

DRUGS (5)
  1. CYCLOSPORINE [Suspect]
     Indication: STEM CELL TRANSPLANT
     Dosage: 3 MG/KG/DAY
  2. METHOTREXATE [Concomitant]
     Indication: STEM CELL TRANSPLANT
     Dosage: 15 MG/M2
  3. METHOTREXATE [Concomitant]
     Dosage: 10 MG/M2
  4. CYCLOPHOSPHAMIDE [Concomitant]
     Dosage: 50 MG/KG/DAY
  5. ANTI-THYMOCYTE GLOBULIN NOS [Concomitant]
     Dosage: 30 MG/KG/DAY

REACTIONS (5)
  - ACUTE GRAFT VERSUS HOST DISEASE [None]
  - CYTOMEGALOVIRUS INFECTION [None]
  - ENGRAFTMENT SYNDROME [None]
  - HISTIOCYTOSIS HAEMATOPHAGIC [None]
  - THROMBOTIC MICROANGIOPATHY [None]
